FAERS Safety Report 25556452 (Version 1)
Quarter: 2025Q3

REPORT INFORMATION
  Report Type: Spontaneous
  Country: US (occurrence: US)
  Receive Date: 20250715
  Receipt Date: 20250715
  Transmission Date: 20251021
  Serious: No
  Sender: NOVO NORDISK
  Company Number: US-NOVOPROD-1278106

PATIENT
  Sex: Female

DRUGS (3)
  1. OZEMPIC [Suspect]
     Active Substance: SEMAGLUTIDE
     Indication: Product used for unknown indication
     Route: 058
     Dates: start: 202401
  2. ALBUTEROL SULFATE [Concomitant]
     Active Substance: ALBUTEROL SULFATE
     Indication: Hypersensitivity
  3. IBUPROFEN [Concomitant]
     Active Substance: IBUPROFEN
     Indication: Chest pain

REACTIONS (4)
  - Chest pain [Unknown]
  - Dyspnoea [Unknown]
  - Decreased appetite [Unknown]
  - Hypersensitivity [Unknown]
